FAERS Safety Report 11857410 (Version 1)
Quarter: 2015Q4

REPORT INFORMATION
  Report Type: Spontaneous
  Country: US (occurrence: None)
  Receive Date: 20151221
  Receipt Date: 20151221
  Transmission Date: 20160305
  Serious: Yes (Life-Threatening, Disabling)
  Sender: FDA-Public Use
  Company Number: None

PATIENT
  Sex: Female

DRUGS (2)
  1. LATUDA [Suspect]
     Active Substance: LURASIDONE HYDROCHLORIDE
     Indication: DEPRESSION
     Dosage: 20 MG 1 PILL AT BEDTIME BY MOUTH
     Route: 048
     Dates: start: 20091109
  2. BENZTROPINE MESYLATE. [Concomitant]
     Active Substance: BENZTROPINE MESYLATE

REACTIONS (6)
  - Dizziness postural [None]
  - White blood cell count decreased [None]
  - Vitamin D deficiency [None]
  - Tremor [None]
  - Vision blurred [None]
  - Parkinson^s disease [None]

NARRATIVE: CASE EVENT DATE: 20091109
